FAERS Safety Report 21007220 (Version 2)
Quarter: 2022Q3

REPORT INFORMATION
  Report Type: Report from Study
  Country: US (occurrence: US)
  Receive Date: 20220625
  Receipt Date: 20220912
  Transmission Date: 20221027
  Serious: Yes (Other)
  Sender: FDA-Public Use
  Company Number: US-TAKEDA-2022TUS042235

PATIENT
  Age: 57 Year
  Sex: Female

DRUGS (23)
  1. TEDUGLUTIDE [Suspect]
     Active Substance: TEDUGLUTIDE
     Indication: Short-bowel syndrome
     Dosage: 2.25 MILLIGRAM, QD
     Route: 042
     Dates: start: 20190327, end: 20220608
  2. TEDUGLUTIDE [Suspect]
     Active Substance: TEDUGLUTIDE
     Indication: Short-bowel syndrome
     Dosage: 2.25 MILLIGRAM, QD
     Route: 042
     Dates: start: 20190327, end: 20220608
  3. TEDUGLUTIDE [Suspect]
     Active Substance: TEDUGLUTIDE
     Indication: Short-bowel syndrome
     Dosage: 2.25 MILLIGRAM, QD
     Route: 042
     Dates: start: 20190327, end: 20220608
  4. TEDUGLUTIDE [Suspect]
     Active Substance: TEDUGLUTIDE
     Indication: Short-bowel syndrome
     Dosage: 2.25 MILLIGRAM, QD
     Route: 042
     Dates: start: 20190327, end: 20220608
  5. VANCOMYCIN [Concomitant]
     Active Substance: VANCOMYCIN
     Indication: Pneumonia
     Dosage: 750 MILLIGRAM, QD
     Route: 042
     Dates: start: 20200525, end: 20200528
  6. OFIRMEV [Concomitant]
     Active Substance: ACETAMINOPHEN
     Indication: Pyrexia
     Dosage: 1000 MILLIGRAM, SINGLE
     Route: 058
     Dates: start: 20200525, end: 20200525
  7. MAGNESIUM GLUCONATE [Concomitant]
     Active Substance: MAGNESIUM GLUCONATE
     Indication: Hypomagnesaemia
     Dosage: 500 MILLIGRAM, BID
     Route: 048
     Dates: start: 20200525, end: 20200525
  8. HYDROCORTISONE SODIUM SUCCINATE [Concomitant]
     Active Substance: HYDROCORTISONE SODIUM SUCCINATE
     Indication: Back pain
     Dosage: 50 MILLIGRAM, SINGLE
     Route: 058
     Dates: start: 20200525, end: 20200525
  9. FAMOTIDINE [Concomitant]
     Active Substance: FAMOTIDINE
     Indication: Abdominal pain
     Dosage: 40 MILLIGRAM, QD
     Route: 048
     Dates: start: 20171215, end: 20180904
  10. AMITRIPTYLINE [Concomitant]
     Active Substance: AMITRIPTYLINE
     Indication: Depression
     Dosage: 25 MILLIGRAM, QD
     Route: 048
     Dates: start: 20171228
  11. AMITRIPTYLINE [Concomitant]
     Active Substance: AMITRIPTYLINE
     Dosage: 10 GRAM
     Route: 048
     Dates: start: 20180523
  12. VITAMIN C [Concomitant]
     Active Substance: ASCORBIC ACID
     Indication: Hypovitaminosis
     Dosage: 500 MILLIGRAM, BID
     Route: 048
     Dates: start: 20171229, end: 20181229
  13. RISPERIDONE [Concomitant]
     Active Substance: RISPERIDONE
     Indication: Schizophrenia
     Dosage: 1 MILLIGRAM, BID
     Route: 048
     Dates: start: 20171229
  14. RISPERIDONE [Concomitant]
     Active Substance: RISPERIDONE
     Indication: Bipolar disorder
  15. CREON [Concomitant]
     Active Substance: PANCRELIPASE AMYLASE\PANCRELIPASE LIPASE\PANCRELIPASE PROTEASE
     Indication: Malabsorption
     Dosage: 24000 INTERNATIONAL UNIT, BID
     Route: 048
     Dates: start: 20171229, end: 20181229
  16. NUTRISOURCE FIBER [Concomitant]
     Indication: Malabsorption
     Dosage: UNK UNK, QID
     Route: 048
     Dates: start: 20171229, end: 20181212
  17. GLUTAMINE [Concomitant]
     Active Substance: GLUTAMINE
     Indication: Malnutrition
     Dosage: 15 GRAM, BID
     Route: 048
  18. CHOLECALCIFEROL [Concomitant]
     Active Substance: CHOLECALCIFEROL
     Indication: Hypovitaminosis
     Dosage: 5000 INTERNATIONAL UNIT, BID
     Route: 048
     Dates: start: 20171109
  19. SUCRALFATE [Concomitant]
     Active Substance: SUCRALFATE
     Indication: Hyperchlorhydria
     Dosage: 1 GRAM, QID
     Route: 048
     Dates: start: 20171109, end: 20180829
  20. LOPERAMIDE [Concomitant]
     Active Substance: LOPERAMIDE
     Indication: Malabsorption
     Dosage: 4 MILLIGRAM
     Route: 048
     Dates: start: 20171026
  21. FISH OIL [Concomitant]
     Active Substance: FISH OIL
     Indication: Fatty acid deficiency
     Dosage: 25 MILLILITER
     Route: 042
     Dates: start: 20171229
  22. FAT EMULSION NOS [Concomitant]
     Active Substance: EGG PHOSPHOLIPIDS\SAFFLOWER OIL\SOYBEAN OIL
     Indication: Fatty acid deficiency
     Dosage: 25 MILLILITER
     Route: 042
     Dates: start: 20171229, end: 20180904
  23. LEVOPHED [Concomitant]
     Active Substance: NOREPINEPHRINE BITARTRATE
     Indication: Hypotension
     Dosage: UNK
     Route: 058
     Dates: start: 20200525, end: 20200525

REACTIONS (5)
  - Hepatic failure [Not Recovered/Not Resolved]
  - Blood creatinine increased [Not Recovered/Not Resolved]
  - Hypertransaminasaemia [Not Recovered/Not Resolved]
  - Blood urea increased [Not Recovered/Not Resolved]
  - Acute kidney injury [Not Recovered/Not Resolved]

NARRATIVE: CASE EVENT DATE: 20220608
